FAERS Safety Report 9482923 (Version 2)
Quarter: 2013Q3

REPORT INFORMATION
  Report Type: Spontaneous
  Country: US (occurrence: US)
  Receive Date: 20130828
  Receipt Date: 20130828
  Transmission Date: 20140515
  Serious: Yes (Hospitalization, Other)
  Sender: FDA-Public Use
  Company Number: US-AMGEN-KDL240755

PATIENT
  Age: 69 Year
  Sex: Male

DRUGS (3)
  1. ENBREL [Suspect]
     Indication: PRODUCT USED FOR UNKNOWN INDICATION
     Dosage: 50 MG, QWK
     Route: 058
     Dates: end: 20070101
  2. CYCLOPHOSPHAMIDE [Suspect]
  3. METHOTREXATE [Concomitant]
     Dosage: UNK UNK, UNK

REACTIONS (3)
  - Bladder cancer [Unknown]
  - Neoplasm malignant [Unknown]
  - Pain in extremity [Not Recovered/Not Resolved]
